FAERS Safety Report 9378436 (Version 2)
Quarter: 2013Q3

REPORT INFORMATION
  Report Type: Spontaneous
  Country: DE (occurrence: DE)
  Receive Date: 20130701
  Receipt Date: 20130729
  Transmission Date: 20140515
  Serious: Yes (Other)
  Sender: FDA-Public Use
  Company Number: DE-JNJFOC-20130617485

PATIENT
  Sex: Male
  Weight: 62 kg

DRUGS (7)
  1. NICORETTE KAUGUMMI 2MG CLASSIC [Suspect]
     Indication: PRODUCT USED FOR UNKNOWN INDICATION
     Route: 048
  2. TILIDIN [Concomitant]
     Route: 065
  3. ACETYLSALICYLIC ACID [Concomitant]
     Route: 065
  4. SIMVASTATIN [Concomitant]
     Route: 065
  5. METOPROLOL [Concomitant]
     Route: 065
  6. RAMIPRIL [Concomitant]
     Route: 065
  7. OMEP [Concomitant]
     Route: 065

REACTIONS (2)
  - Dependence [Not Recovered/Not Resolved]
  - Intentional drug misuse [Unknown]
